FAERS Safety Report 4302418-4 (Version None)
Quarter: 2004Q1

REPORT INFORMATION
  Report Type: 
  Country: None (occurrence: None)
  Receive Date: 20040223
  Receipt Date: 20040223
  Transmission Date: 20041129
  Serious: Yes (Hospitalization)
  Sender: FDA-Public Use
  Company Number: None

PATIENT
  Age: 54 Year
  Sex: Female

DRUGS (2)
  1. TAXOTERE [Suspect]
     Indication: NON-SMALL CELL LUNG CANCER
     Dosage: 20MG/M2 WEEKLY INTRAVENOUS
     Route: 042
     Dates: start: 20031121, end: 20040113
  2. CARBOPLATIN [Suspect]
     Indication: NON-SMALL CELL LUNG CANCER
     Dosage: AUC 2 WEEKLY INTRAVENOUS
     Route: 042
     Dates: start: 20031121, end: 20040113

REACTIONS (2)
  - HUMERUS FRACTURE [None]
  - METASTASES TO BONE [None]
